FAERS Safety Report 14380571 (Version 1)
Quarter: 2018Q1

REPORT INFORMATION
  Report Type: Report from Study
  Country: US (occurrence: BR)
  Receive Date: 20180112
  Receipt Date: 20180112
  Transmission Date: 20180509
  Serious: Yes (Hospitalization, Other)
  Sender: FDA-Public Use
  Company Number: US-SUNOVION-2018SUN000056

PATIENT
  Sex: Male
  Weight: 75 kg

DRUGS (2)
  1. INDACATEROL AND GLYCOPYRROLATE [Suspect]
     Active Substance: GLYCOPYRROLATE\INDACATEROL MALEATE
     Indication: BRONCHIAL OBSTRUCTION
     Dosage: 1 DF, QD (GLYCOPYRRONIUM 50 UG AND INDACATEROL 110 UG)
     Route: 055
  2. TAMIFLU [Concomitant]
     Active Substance: OSELTAMIVIR PHOSPHATE
     Dosage: UNK

REACTIONS (5)
  - Dizziness [Recovered/Resolved]
  - Product use in unapproved indication [Unknown]
  - Blood pressure decreased [Recovered/Resolved]
  - Infection [Recovered/Resolved]
  - Bronchial obstruction [Recovered/Resolved]
